FAERS Safety Report 9964927 (Version 1)
Quarter: 2014Q1

REPORT INFORMATION
  Report Type: Spontaneous
  Country: HR (occurrence: HR)
  Receive Date: 20140305
  Receipt Date: 20140305
  Transmission Date: 20141002
  Serious: Yes (Other)
  Sender: FDA-Public Use
  Company Number: PHHY2014HR023654

PATIENT
  Age: 47 Year
  Sex: Male
  Weight: 80 kg

DRUGS (3)
  1. OSPAMOX [Suspect]
     Indication: OTITIS MEDIA
     Dosage: 1 G, BID
     Route: 048
     Dates: start: 20130419, end: 20130421
  2. FLAVAMED [Suspect]
     Indication: SINUSITIS
     Dosage: 30 MG, TID
     Route: 048
     Dates: start: 20130419, end: 20130421
  3. BELODIN [Concomitant]
     Indication: RHINITIS
     Dosage: 30 MG, QD
     Route: 048
     Dates: start: 20110609

REACTIONS (1)
  - Lip oedema [Recovered/Resolved]
